FAERS Safety Report 12630240 (Version 1)
Quarter: 2016Q3

REPORT INFORMATION
  Report Type: Spontaneous
  Country: BE (occurrence: BE)
  Receive Date: 20160808
  Receipt Date: 20160808
  Transmission Date: 20161109
  Serious: Yes (Death, Hospitalization)
  Sender: FDA-Public Use
  Company Number: BE-ASTRAZENECA-2016SE84726

PATIENT
  Age: 22 Year
  Sex: Male

DRUGS (1)
  1. SEROQUEL [Suspect]
     Active Substance: QUETIAPINE FUMARATE
     Indication: SCHIZOPHRENIA
     Route: 048

REACTIONS (5)
  - Headache [Fatal]
  - Somnolence [Fatal]
  - Aggression [Fatal]
  - Feeling abnormal [Fatal]
  - Head injury [Fatal]

NARRATIVE: CASE EVENT DATE: 20160122
